FAERS Safety Report 5498924-X (Version None)
Quarter: 2007Q4

REPORT INFORMATION
  Report Type: 
  Country: None (occurrence: None)
  Receive Date: 20071024
  Receipt Date: 20071024
  Transmission Date: 20080405
  Serious: Yes (Life-Threatening, Hospitalization)
  Sender: FDA-Public Use
  Company Number: None

PATIENT
  Age: 27 Year
  Sex: Male
  Weight: 90.9 kg

DRUGS (2)
  1. CELEXA [Suspect]
     Indication: BIPOLAR DISORDER
     Dosage: 20MG ONCE DAILY PO
     Route: 048
     Dates: start: 20061001, end: 20071021
  2. CELEXA [Suspect]
     Indication: DEPRESSION
     Dosage: 20MG ONCE DAILY PO
     Route: 048
     Dates: start: 20061001, end: 20071021

REACTIONS (1)
  - OVERDOSE [None]
